FAERS Safety Report 6983812-X (Version None)
Quarter: 2010Q3

REPORT INFORMATION
  Report Type: 
  Country: None (occurrence: None)
  Receive Date: 20100914
  Receipt Date: 20090304
  Transmission Date: 20110219
  Serious: No
  Sender: FDA-Public Use
  Company Number: US-WYE-H08474409

PATIENT
  Sex: Female

DRUGS (6)
  1. ADVIL LIQUI-GELS [Suspect]
     Indication: BURSITIS
     Route: 048
     Dates: start: 20090201
  2. TYLENOL [Concomitant]
     Dosage: UNKNOWN
     Route: 048
  3. CORTISONE ACETATE [Concomitant]
     Indication: BURSITIS
     Dosage: UNKNOWN
     Route: 065
     Dates: start: 20080301
  4. DOXYCYCLINE [Suspect]
     Indication: DIVERTICULITIS
     Dosage: 10 CAPSULES OVER 5 DAYS
     Route: 065
     Dates: start: 20090101
  5. ALEVE (CAPLET) [Suspect]
     Indication: BURSITIS
     Route: 048
     Dates: start: 20090206, end: 20090209
  6. EFFEXOR [Concomitant]
     Indication: ANXIETY
     Dosage: UNKNOWN
     Route: 048

REACTIONS (3)
  - ABDOMINAL PAIN UPPER [None]
  - HAEMATOCHEZIA [None]
  - RECTAL HAEMORRHAGE [None]
